FAERS Safety Report 7256692-5 (Version None)
Quarter: 2011Q1

REPORT INFORMATION
  Report Type: 
  Country: None (occurrence: None)
  Receive Date: 20110129
  Receipt Date: 20100809
  Transmission Date: 20110831
  Serious: No
  Sender: FDA-Public Use
  Company Number: US-ABBOTT-10P-163-0663232-00

PATIENT
  Sex: Female

DRUGS (4)
  1. SYNTHROID [Concomitant]
     Indication: HYPOTHYROIDISM
     Dosage: UNKNOWN
     Dates: start: 20080101
  2. CYTOMEL [Concomitant]
     Indication: HYPOTHYROIDISM
     Dosage: UNKNOWN
     Dates: start: 20080101
  3. HUMIRA [Suspect]
     Indication: ANKYLOSING SPONDYLITIS
     Dates: start: 20080101
  4. PREMARIN [Concomitant]
     Indication: HORMONE REPLACEMENT THERAPY
     Dosage: UNKNOWN
     Dates: start: 19900101

REACTIONS (1)
  - INJECTION SITE HAEMATOMA [None]
